FAERS Safety Report 6543603-0 (Version None)
Quarter: 2010Q1

REPORT INFORMATION
  Report Type: 
  Country: None (occurrence: None)
  Receive Date: 20100119
  Receipt Date: 20100119
  Transmission Date: 20100710
  Serious: No
  Sender: FDA-Public Use
  Company Number: None

PATIENT
  Sex: Female
  Weight: 1.4 kg

DRUGS (2)
  1. CUROSURF [Suspect]
     Indication: NEONATAL RESPIRATORY DISTRESS SYNDROME
     Dosage: 1.75 ML X ONCE ET
     Route: 007
     Dates: start: 20100107
  2. CUROSURF [Suspect]
     Dosage: 1.75 ML X ONCE ET
     Route: 007

REACTIONS (1)
  - UNEVALUABLE EVENT [None]
